FAERS Safety Report 24072524 (Version 1)
Quarter: 2024Q3

REPORT INFORMATION
  Report Type: Spontaneous
  Country: GB (occurrence: GB)
  Receive Date: 20240710
  Receipt Date: 20240710
  Transmission Date: 20241017
  Serious: Yes (Other)
  Sender: MYLAN
  Company Number: None

PATIENT
  Sex: Female
  Weight: 57 kg

DRUGS (4)
  1. ATORVASTATIN [Suspect]
     Active Substance: ATORVASTATIN
     Indication: Hypercholesterolaemia
     Dosage: 20 MILLIGRAM, QD (20MG ONCE A DAY)
     Route: 065
     Dates: start: 202402, end: 202404
  2. AMLODIPINE [Concomitant]
     Active Substance: AMLODIPINE BESYLATE
     Indication: Hypertension
     Dosage: UNK
     Route: 065
  3. INDAPAMIDE [Concomitant]
     Active Substance: INDAPAMIDE
     Indication: Hypertension
     Dosage: UNK
     Route: 065
  4. CALCI D [Concomitant]
     Indication: Osteopenia
     Dosage: UNK
     Route: 065

REACTIONS (2)
  - Muscle spasms [Recovered/Resolved]
  - Foreign body sensation in eyes [Recovered/Resolved]

NARRATIVE: CASE EVENT DATE: 20240301
